FAERS Safety Report 25691743 (Version 1)
Quarter: 2025Q3

REPORT INFORMATION
  Report Type: Spontaneous
  Country: EU (occurrence: EU)
  Receive Date: 20250818
  Receipt Date: 20250818
  Transmission Date: 20251021
  Serious: Yes (Other)
  Sender: MYLAN
  Company Number: EU-MYLANLABS-2025M1068476

PATIENT
  Age: 54 Year

DRUGS (12)
  1. DARUNAVIR [Interacting]
     Active Substance: DARUNAVIR
     Indication: HIV infection
  2. DARUNAVIR [Interacting]
     Active Substance: DARUNAVIR
     Route: 065
  3. DARUNAVIR [Interacting]
     Active Substance: DARUNAVIR
     Route: 065
  4. DARUNAVIR [Interacting]
     Active Substance: DARUNAVIR
  5. COBICISTAT [Interacting]
     Active Substance: COBICISTAT
     Indication: HIV infection
  6. COBICISTAT [Interacting]
     Active Substance: COBICISTAT
     Route: 065
  7. COBICISTAT [Interacting]
     Active Substance: COBICISTAT
     Route: 065
  8. COBICISTAT [Interacting]
     Active Substance: COBICISTAT
  9. FLUTICASONE PROPIONATE\FORMOTEROL FUMARATE [Interacting]
     Active Substance: FLUTICASONE PROPIONATE\FORMOTEROL FUMARATE
     Indication: Chronic obstructive pulmonary disease
  10. FLUTICASONE PROPIONATE\FORMOTEROL FUMARATE [Interacting]
     Active Substance: FLUTICASONE PROPIONATE\FORMOTEROL FUMARATE
     Route: 055
  11. FLUTICASONE PROPIONATE\FORMOTEROL FUMARATE [Interacting]
     Active Substance: FLUTICASONE PROPIONATE\FORMOTEROL FUMARATE
     Route: 055
  12. FLUTICASONE PROPIONATE\FORMOTEROL FUMARATE [Interacting]
     Active Substance: FLUTICASONE PROPIONATE\FORMOTEROL FUMARATE

REACTIONS (2)
  - Cushing^s syndrome [Unknown]
  - Drug interaction [Unknown]
